FAERS Safety Report 9499561 (Version 1)
Quarter: 2013Q3

REPORT INFORMATION
  Report Type: Spontaneous
  Country: DE (occurrence: DE)
  Receive Date: 20130905
  Receipt Date: 20130905
  Transmission Date: 20140515
  Serious: Yes (Other)
  Sender: FDA-Public Use
  Company Number: DE-ROCHE-1269531

PATIENT
  Age: 53 Year
  Sex: 0

DRUGS (2)
  1. VEMURAFENIB [Suspect]
     Indication: METASTATIC MALIGNANT MELANOMA
     Route: 065
     Dates: start: 201201
  2. VEMURAFENIB [Suspect]
     Dosage: REDUCED DOSE
     Route: 065
     Dates: start: 201212

REACTIONS (2)
  - Drug-induced liver injury [Unknown]
  - Hepatotoxicity [Unknown]
